FAERS Safety Report 7631667-2 (Version None)
Quarter: 2011Q3

REPORT INFORMATION
  Report Type: 
  Country: None (occurrence: None)
  Receive Date: 20110725
  Receipt Date: 20110311
  Transmission Date: 20111222
  Serious: Yes (Other)
  Sender: FDA-Public Use
  Company Number: US-BRISTOL-MYERS SQUIBB COMPANY-15545650

PATIENT
  Age: 47 Year
  Sex: Female
  Weight: 82 kg

DRUGS (8)
  1. SULAR [Concomitant]
  2. ZYRTEC [Concomitant]
  3. DIOVAN [Concomitant]
  4. BENADRYL [Concomitant]
     Dosage: OCCASIONAL BENADRYL
  5. RHINOCORT [Concomitant]
     Indication: SEASONAL ALLERGY
  6. COUMADIN [Suspect]
     Indication: THROMBOSIS
     Dosage: PREVIOUS DOSE WAS 5MG/DAYON,WED ALTERNATE A FULL TABLET DAILY WITH A HALF-TABLET DAILY
     Dates: start: 20110205
  7. BLOOD PRESSURE PILL [Concomitant]
  8. NEXIUM [Concomitant]

REACTIONS (3)
  - MACULE [None]
  - INTERNATIONAL NORMALISED RATIO DECREASED [None]
  - PRURITUS [None]
